FAERS Safety Report 13158652 (Version 1)
Quarter: 2017Q1

REPORT INFORMATION
  Report Type: Spontaneous
  Country: US (occurrence: US)
  Receive Date: 20170127
  Receipt Date: 20170127
  Transmission Date: 20170428
  Serious: Yes (Other)
  Sender: FDA-Public Use
  Company Number: None

PATIENT
  Age: 78 Year
  Sex: Female
  Weight: 70.37 kg

DRUGS (1)
  1. DAPSONE. 100 MG VIRTUS [Suspect]
     Active Substance: DAPSONE
     Indication: HERPES DERMATITIS
     Dosage: DOSE - 2-WEEKS AT 50?FREQUENCY - 1 PER DAY?ROUTE - PO
     Route: 048
     Dates: start: 20161017, end: 20161030

REACTIONS (18)
  - Decreased appetite [None]
  - Oropharyngeal pain [None]
  - Pruritus [None]
  - Heart rate increased [None]
  - Dizziness [None]
  - Yellow skin [None]
  - Epistaxis [None]
  - Chromaturia [None]
  - Confusional state [None]
  - Cough [None]
  - Rash [None]
  - Chest pain [None]
  - Gait disturbance [None]
  - Faeces discoloured [None]
  - Dyspnoea [None]
  - Dysphonia [None]
  - Joint swelling [None]
  - Arthralgia [None]

NARRATIVE: CASE EVENT DATE: 20161107
